FAERS Safety Report 9348575 (Version 1)
Quarter: 2013Q2

REPORT INFORMATION
  Report Type: Spontaneous
  Country: IT (occurrence: IT)
  Receive Date: 20130614
  Receipt Date: 20130614
  Transmission Date: 20140414
  Serious: Yes (Hospitalization)
  Sender: FDA-Public Use
  Company Number: IT-SANOFI-AVENTIS-2013SA057635

PATIENT
  Age: 84 Year
  Sex: Female

DRUGS (6)
  1. CLEXANE [Suspect]
     Indication: THROMBOSIS PROPHYLAXIS
     Dosage: 1 POSOLOGICAL UNIT
     Route: 058
     Dates: start: 20130417, end: 20130425
  2. PLAVIX [Suspect]
     Indication: THROMBOSIS PROPHYLAXIS
     Dosage: 1 POSOLOGICAL UNIT
     Route: 048
     Dates: start: 20130101, end: 20130427
  3. LOBIVON [Concomitant]
     Route: 048
  4. LASIX [Concomitant]
     Route: 048
  5. VASCOMAN [Concomitant]
     Route: 048
  6. FORZAAR [Concomitant]

REACTIONS (2)
  - Hemiplegia [Unknown]
  - Hypoaesthesia [Unknown]
